FAERS Safety Report 23925150 (Version 2)
Quarter: 2024Q3

REPORT INFORMATION
  Report Type: Spontaneous
  Country: CN (occurrence: CN)
  Receive Date: 20240531
  Receipt Date: 20240802
  Transmission Date: 20241017
  Serious: Yes (Other)
  Sender: ROCHE
  Company Number: None

PATIENT
  Age: 79 Year
  Sex: Female

DRUGS (3)
  1. CAPECITABINE [Suspect]
     Active Substance: CAPECITABINE
     Indication: Breast cancer metastatic
     Dosage: ON DAYS 1-14
     Route: 048
     Dates: start: 202006
  2. TRASTUZUMAB [Suspect]
     Active Substance: TRASTUZUMAB
     Indication: Breast cancer metastatic
     Route: 065
     Dates: start: 201908, end: 202005
  3. PYROTINIB [Suspect]
     Active Substance: PYROTINIB
     Indication: Breast cancer metastatic
     Dosage: 240-320 MG DAILY
     Route: 065
     Dates: start: 202006

REACTIONS (5)
  - Leukopenia [Unknown]
  - Diarrhoea [Unknown]
  - Nausea [Recovering/Resolving]
  - Weight decreased [Recovering/Resolving]
  - Metastasis [Unknown]

NARRATIVE: CASE EVENT DATE: 20220601
